FAERS Safety Report 5716404-0 (Version None)
Quarter: 2008Q2

REPORT INFORMATION
  Report Type: 
  Country: None (occurrence: None)
  Receive Date: 20080424
  Receipt Date: 20080415
  Transmission Date: 20081010
  Serious: Yes (Life-Threatening, Hospitalization)
  Sender: FDA-Public Use
  Company Number: AU-WYE-G01209308

PATIENT
  Age: 40 Year
  Sex: Female
  Weight: 53 kg

DRUGS (2)
  1. EFFEXOR XR [Suspect]
     Indication: MAJOR DEPRESSION
     Dosage: 225 MG DAILY
     Route: 048
     Dates: start: 20070901, end: 20071001
  2. CAMPRAL [Concomitant]
     Indication: ALCOHOLISM
     Dosage: 2 TABLETS MORNING, ONE TABLET MIDDAY, ONE TABLET AT NIGHT
     Route: 048

REACTIONS (3)
  - DRUG WITHDRAWAL SYNDROME [None]
  - DYSPNOEA [None]
  - DYSTONIA [None]
